FAERS Safety Report 25129790 (Version 1)
Quarter: 2025Q1

REPORT INFORMATION
  Report Type: Spontaneous
  Country: US (occurrence: None)
  Receive Date: 20250327
  Receipt Date: 20250327
  Transmission Date: 20250409
  Serious: Yes (Hospitalization)
  Sender: FDA-CTU
  Company Number: None

PATIENT
  Age: 79 Year
  Sex: Male
  Weight: 99.79 kg

DRUGS (8)
  1. COREG [Suspect]
     Active Substance: CARVEDILOL
     Indication: Cardiac failure congestive
     Dates: start: 201901, end: 202001
  2. SACUBITRIL\VALSARTAN [Concomitant]
     Active Substance: SACUBITRIL\VALSARTAN
  3. HYDROCORTISONE [Concomitant]
     Active Substance: HYDROCORTISONE
  4. XELJANZ XR [Concomitant]
     Active Substance: TOFACITINIB CITRATE
  5. ELIQUIS [Concomitant]
     Active Substance: APIXABAN
  6. CRESTOR [Concomitant]
     Active Substance: ROSUVASTATIN CALCIUM
  7. Multi-Vitamins [Concomitant]
  8. VITAMIN D NOS [Concomitant]
     Active Substance: CHOLECALCIFEROL\ERGOCALCIFEROL

REACTIONS (5)
  - Orthopnoea [None]
  - Fluid retention [None]
  - Atrial fibrillation [None]
  - Ejection fraction decreased [None]
  - Idiosyncratic drug reaction [None]

NARRATIVE: CASE EVENT DATE: 20190901
